FAERS Safety Report 20182440 (Version 2)
Quarter: 2022Q1

REPORT INFORMATION
  Report Type: Spontaneous
  Country: CO (occurrence: CO)
  Receive Date: 20211214
  Receipt Date: 20220316
  Transmission Date: 20220423
  Serious: Yes (Death, Hospitalization)
  Sender: FDA-Public Use
  Company Number: CO-PFIZER INC-202101758912

PATIENT
  Age: 76 Year
  Sex: Male

DRUGS (2)
  1. LYRICA [Suspect]
     Active Substance: PREGABALIN
     Indication: Intervertebral disc disorder
     Dosage: UNK
     Route: 048
     Dates: start: 20211030
  2. LYRICA [Suspect]
     Active Substance: PREGABALIN
     Indication: Radiculopathy

REACTIONS (1)
  - Prostate cancer [Fatal]
